FAERS Safety Report 9522023 (Version 1)
Quarter: 2013Q3

REPORT INFORMATION
  Report Type: Spontaneous
  Country: IN (occurrence: IN)
  Receive Date: 20130913
  Receipt Date: 20130913
  Transmission Date: 20140515
  Serious: Yes (Hospitalization, Other)
  Sender: FDA-Public Use
  Company Number: IN-RANBAXY-2013RR-72863

PATIENT
  Age: 46 Year
  Sex: Female

DRUGS (9)
  1. RISPERIDONE [Suspect]
     Indication: ACUTE PSYCHOSIS
     Dosage: UP TO 3 MG/DAY
     Route: 065
  2. OLANZAPINE [Suspect]
     Indication: ACUTE PSYCHOSIS
     Dosage: UP TO 20 MG/DAY
     Route: 065
  3. TRIFLUOPERAZINE [Suspect]
     Indication: PSYCHOTIC DISORDER
     Dosage: 15 MG/DAY
     Route: 065
  4. SERTRALINE HYDROCHLORIDE [Suspect]
     Indication: DEPRESSIVE SYMPTOM
     Dosage: UNK
     Route: 065
  5. QUETIAPINE [Suspect]
     Indication: PSYCHOTIC DISORDER
     Dosage: UP TO 300 MG/DAY
     Route: 065
  6. QUETIAPINE [Suspect]
     Indication: PSYCHOTIC DISORDER
     Dosage: 600 MG/DAY
     Route: 065
  7. CLONAZEPAM [Suspect]
     Indication: PSYCHOTIC DISORDER
     Dosage: 6 MG/DAY
     Route: 065
  8. ZIPRASIDONE [Suspect]
     Indication: PSYCHOTIC DISORDER
     Dosage: UP TO 120 MG/DAY
     Route: 065
  9. ZIPRASIDONE [Suspect]
     Indication: PSYCHOTIC DISORDER
     Dosage: 140 MG/DAY
     Route: 065

REACTIONS (5)
  - Hyperprolactinaemia [Recovered/Resolved]
  - Obesity [Not Recovered/Not Resolved]
  - Metabolic syndrome [Unknown]
  - Somatoform disorder pregnancy [Recovered/Resolved]
  - Electrocardiogram change [Unknown]
